FAERS Safety Report 9538966 (Version 3)
Quarter: 2013Q3

REPORT INFORMATION
  Report Type: Spontaneous
  Country: JP (occurrence: JP)
  Receive Date: 20130920
  Receipt Date: 20130930
  Transmission Date: 20140515
  Serious: Yes (Hospitalization)
  Sender: FDA-Public Use
  Company Number: JP-ASTELLAS-2013JP008768

PATIENT
  Age: 77 Year
  Sex: Female
  Weight: 36.5 kg

DRUGS (2)
  1. BETANIS [Suspect]
     Indication: HYPERTONIC BLADDER
     Dosage: 50 MG, UID/QD
     Route: 048
     Dates: start: 20130722, end: 20130724
  2. HANGESHASHINTO [Concomitant]
     Indication: ABDOMINAL DISCOMFORT
     Dosage: 2.5 G, TID
     Route: 048
     Dates: start: 20130722, end: 20130724

REACTIONS (5)
  - Stomatitis [Recovered/Resolved]
  - Pyrexia [Recovered/Resolved]
  - Pharyngitis [Recovered/Resolved]
  - Diarrhoea [Recovered/Resolved]
  - Abdominal pain [Recovered/Resolved]
